FAERS Safety Report 7232082-6 (Version None)
Quarter: 2011Q1

REPORT INFORMATION
  Report Type: 
  Country: None (occurrence: None)
  Receive Date: 20110118
  Receipt Date: 20110105
  Transmission Date: 20110831
  Serious: Yes (Other)
  Sender: FDA-Public Use
  Company Number: JP-MYLANLABS-2010S1022199

PATIENT
  Age: 53 Year
  Sex: Female
  Weight: 38.2 kg

DRUGS (3)
  1. CARBOPLATIN [Suspect]
     Indication: CERVIX CARCINOMA RECURRENT
     Route: 041
     Dates: start: 20101013, end: 20101013
  2. PACLITAXEL [Suspect]
     Indication: CERVIX CARCINOMA RECURRENT
     Route: 041
     Dates: start: 20101013, end: 20101013
  3. DEXART [Concomitant]
     Indication: PREMEDICATION
     Route: 041
     Dates: start: 20101013, end: 20101013

REACTIONS (5)
  - BRADYCARDIA [None]
  - DEPRESSED LEVEL OF CONSCIOUSNESS [None]
  - SOMNOLENCE [None]
  - VIITH NERVE PARALYSIS [None]
  - MUSCULAR WEAKNESS [None]
